FAERS Safety Report 7645119-7 (Version None)
Quarter: 2011Q3

REPORT INFORMATION
  Report Type: 
  Country: None (occurrence: None)
  Receive Date: 20110725
  Receipt Date: 20110711
  Transmission Date: 20111222
  Serious: Yes (Hospitalization, Other)
  Sender: FDA-Public Use
  Company Number: 09-001053

PATIENT
  Age: 16 Year
  Sex: Male
  Weight: 69.4 kg

DRUGS (1)
  1. DORYX [Suspect]
     Indication: ACNE
     Dosage: 100MG, QD, ORAL
     Route: 048
     Dates: start: 20080901, end: 20090228

REACTIONS (14)
  - HEPATIC FIBROSIS [None]
  - TINEA PEDIS [None]
  - NECK PAIN [None]
  - TINEA CRURIS [None]
  - RENAL CYST [None]
  - FUNGAL SKIN INFECTION [None]
  - BACK PAIN [None]
  - STAPHYLOCOCCAL INFECTION [None]
  - HYPERSENSITIVITY [None]
  - HYPOTHYROIDISM [None]
  - INFECTED DERMAL CYST [None]
  - HEPATITIS ACUTE [None]
  - FOLLICULITIS [None]
  - PAIN IN EXTREMITY [None]
